FAERS Safety Report 9059591 (Version 2)
Quarter: 2013Q1

REPORT INFORMATION
  Report Type: Spontaneous
  Country: GB (occurrence: GB)
  Receive Date: 20130212
  Receipt Date: 20130220
  Transmission Date: 20140127
  Serious: Yes (Other)
  Sender: FDA-Public Use
  Company Number: GB-ABBOTT-13P-167-1048225-00

PATIENT
  Age: 70 Year
  Sex: Male

DRUGS (1)
  1. EPILIM CHRONO [Suspect]
     Indication: EPILEPSY
     Dates: start: 2012

REACTIONS (2)
  - Cerebrovascular accident [Unknown]
  - Convulsion [Unknown]
